FAERS Safety Report 21938212 (Version 8)
Quarter: 2023Q2

REPORT INFORMATION
  Report Type: Report from Study
  Country: US (occurrence: US)
  Receive Date: 20230201
  Receipt Date: 20230613
  Transmission Date: 20230721
  Serious: No
  Sender: FDA-Public Use
  Company Number: US-002147023-NVSC2023US017465

PATIENT
  Sex: Female

DRUGS (1)
  1. KESIMPTA [Suspect]
     Active Substance: OFATUMUMAB
     Indication: Multiple sclerosis
     Dosage: UNK
     Route: 058
     Dates: start: 20221228

REACTIONS (8)
  - Fungal infection [Unknown]
  - Rash [Unknown]
  - Endometriosis [Unknown]
  - Pain in extremity [Unknown]
  - Sensory disturbance [Unknown]
  - Abdominal pain [Unknown]
  - Blood urine present [Unknown]
  - Migraine [Unknown]
